FAERS Safety Report 25510050 (Version 1)
Quarter: 2025Q3

REPORT INFORMATION
  Report Type: Spontaneous
  Country: US (occurrence: None)
  Receive Date: 20250702
  Receipt Date: 20250702
  Transmission Date: 20251020
  Serious: Yes (Other)
  Sender: FDA-CTU
  Company Number: None

PATIENT
  Age: 72 Year
  Sex: Female
  Weight: 72 kg

DRUGS (7)
  1. XIIDRA [Suspect]
     Active Substance: LIFITEGRAST
     Indication: Corneal transplant
     Dosage: OTHER QUANTITY : 1 DROP(S);?FREQUENCY : EVERY 12 HOURS;?
     Route: 047
     Dates: start: 20250502, end: 20250701
  2. HERBALS\TURMERIC [Concomitant]
     Active Substance: HERBALS\TURMERIC
  3. MAGNESIUM [Concomitant]
     Active Substance: MAGNESIUM
  4. NAC [Concomitant]
  5. BERBERINE [Concomitant]
     Active Substance: BERBERINE
  6. CAPSICUM\HERBALS [Concomitant]
     Active Substance: CAPSICUM\HERBALS
  7. UNSPECIFIED INGREDIENT [Concomitant]
     Active Substance: UNSPECIFIED INGREDIENT

REACTIONS (1)
  - Rhinitis [None]

NARRATIVE: CASE EVENT DATE: 20250601
